FAERS Safety Report 6272903-7 (Version None)
Quarter: 2009Q3

REPORT INFORMATION
  Report Type: 
  Country: None (occurrence: None)
  Receive Date: 20090717
  Receipt Date: 20090706
  Transmission Date: 20100115
  Serious: Yes (Disabling, Other)
  Sender: FDA-Public Use
  Company Number: GB-PFIZER INC-2009191360

PATIENT
  Age: 59 Year

DRUGS (3)
  1. CHAMPIX [Suspect]
     Indication: SMOKING CESSATION THERAPY
     Dosage: 1 MG, 2X/DAY
     Route: 048
     Dates: start: 20081013, end: 20081222
  2. TRAVOPROST [Concomitant]
     Indication: GLAUCOMA
     Dosage: UNK
     Route: 047
     Dates: start: 20080813
  3. FLUOXETINE [Concomitant]

REACTIONS (14)
  - AGGRESSION [None]
  - APATHY [None]
  - DEPRESSION [None]
  - DIARRHOEA [None]
  - DYSGEUSIA [None]
  - ECZEMA [None]
  - EYELID OEDEMA [None]
  - FAECAL INCONTINENCE [None]
  - IRRITABILITY [None]
  - LETHARGY [None]
  - MALAISE [None]
  - MOOD SWINGS [None]
  - RASH PRURITIC [None]
  - SUICIDAL IDEATION [None]
